FAERS Safety Report 4369973-X (Version None)
Quarter: 2004Q2

REPORT INFORMATION
  Report Type: 
  Country: None (occurrence: None)
  Receive Date: 20040525
  Receipt Date: 20040512
  Transmission Date: 20050107
  Serious: Yes (Life-Threatening)
  Sender: FDA-Public Use
  Company Number: 2004032346

PATIENT
  Age: 24 Year
  Sex: Male

DRUGS (1)
  1. VFEND [Suspect]
     Indication: BRONCHOPULMONARY ASPERGILLOSIS
     Dosage: INTRAVENOUS; 400 MG (BID), ORAL
     Route: 042
     Dates: end: 20040501

REACTIONS (6)
  - BRONCHOPULMONARY ASPERGILLOSIS [None]
  - CENTRAL NERVOUS SYSTEM LESION [None]
  - CONDITION AGGRAVATED [None]
  - HEPATIC NEOPLASM [None]
  - LUNG INFECTION [None]
  - RESPIRATORY TRACT INFECTION FUNGAL [None]
